FAERS Safety Report 18168005 (Version 1)
Quarter: 2020Q3

REPORT INFORMATION
  Report Type: Spontaneous
  Country: BR (occurrence: BR)
  Receive Date: 20200819
  Receipt Date: 20200819
  Transmission Date: 20201103
  Serious: Yes (Other)
  Sender: FDA-Public Use
  Company Number: BR-TEVA-2020-BR-1815955

PATIENT
  Age: 78 Year
  Sex: Male
  Weight: 50 kg

DRUGS (14)
  1. DOXAZOSIN [Concomitant]
     Active Substance: DOXAZOSIN MESYLATE
     Dosage: 2 MILLIGRAM DAILY; 1 TABLET AT NIGHT
     Route: 048
  2. TEVAOXALI [Suspect]
     Active Substance: OXALIPLATIN
     Route: 042
     Dates: start: 20200720
  3. DEXAMETHASONE. [Concomitant]
     Active Substance: DEXAMETHASONE
     Dosage: 8 MILLIGRAM DAILY; FOR 2 DAYS AFTER CHEMOTHERAPY
     Route: 048
  4. SENNA ALEXANDRINA, CASSIA [Concomitant]
     Dosage: 14.634MG / 11.700MG, SOS INDICATION
     Route: 048
  5. NYSTATIN. [Concomitant]
     Active Substance: NYSTATIN
     Dosage: 100,000 UI / ML, SOS INDICATION
     Route: 048
  6. BROMOPRIDE [Concomitant]
     Active Substance: BROMOPRIDE
     Dosage: 1 TABLET BEFORE MEALS
     Route: 048
  7. PANTOPRAZOLE [Concomitant]
     Active Substance: PANTOPRAZOLE
     Dosage: 80 MILLIGRAM DAILY; 1 TABLET BEFORE BREAKFAST AND DINNER
     Route: 048
  8. DOMPERIDONE [Concomitant]
     Active Substance: DOMPERIDONE
     Dosage: 20 MILLIGRAM DAILY; 1 TABLET AFTER BREAKFAST AND LUNCH
     Route: 048
  9. SACCHAROMYCES BOULARDII?17 [Concomitant]
     Dosage: SOS INDICATION
     Route: 048
  10. FAULDFLUOR [Suspect]
     Active Substance: FLUOROURACIL
     Dosage: 46H INFUSION PUMP INFUSION
     Route: 065
  11. ONDANSETRON [Concomitant]
     Active Substance: ONDANSETRON
     Dosage: 24 MILLIGRAM DAILY; AFTER CHEMOTHERAPY AND SOS INDICATION
     Route: 048
  12. LOPERAMIDE [Concomitant]
     Active Substance: LOPERAMIDE
     Dosage: SOS INDICATION
     Route: 048
  13. DIPYRONE [Concomitant]
     Active Substance: DIPYRONE
     Dosage: SOS INDICATION
     Route: 048
  14. SIMETHICONE (DIMETHICONE) [Concomitant]
     Active Substance: DIMETHICONE
     Dosage: SOS INDICATION
     Route: 048

REACTIONS (3)
  - Nausea [Not Recovered/Not Resolved]
  - Discoloured vomit [Not Recovered/Not Resolved]
  - Gastrointestinal obstruction [Not Recovered/Not Resolved]

NARRATIVE: CASE EVENT DATE: 20200805
